FAERS Safety Report 15854934 (Version 2)
Quarter: 2019Q1

REPORT INFORMATION
  Report Type: Report from Study
  Country: ZA (occurrence: ZA)
  Receive Date: 20190122
  Receipt Date: 20190318
  Transmission Date: 20190417
  Serious: Yes (Hospitalization)
  Sender: FDA-Public Use
  Company Number: ZA-GILEAD-2019-0384828

PATIENT
  Age: 28 Year
  Sex: Female

DRUGS (6)
  1. EMTRICITABINE/TENOFOVIR DISOPROXIL FUMARATE [Suspect]
     Active Substance: EMTRICITABINE\TENOFOVIR DISOPROXIL FUMARATE
     Indication: PROPHYLAXIS AGAINST HIV INFECTION
     Dosage: 500 MG, QD
     Route: 065
     Dates: start: 20180413
  2. FERROUS SULPHATE [FERROUS SULFATE] [Concomitant]
     Active Substance: FERROUS SULFATE
  3. FOLIC ACID. [Concomitant]
     Active Substance: FOLIC ACID
  4. ASPIRIN (E.C.) [Concomitant]
     Active Substance: ASPIRIN
  5. ALDOMET M [Concomitant]
     Dosage: UNK
     Dates: start: 20180801
  6. CALCIUM [Concomitant]
     Active Substance: CALCIUM

REACTIONS (2)
  - Maternal exposure during pregnancy [Unknown]
  - Premature labour [Recovered/Resolved]

NARRATIVE: CASE EVENT DATE: 20180413
